FAERS Safety Report 8937012 (Version 4)
Quarter: 2013Q2

REPORT INFORMATION
  Report Type: Spontaneous
  Country: US (occurrence: US)
  Receive Date: 20121130
  Receipt Date: 20130517
  Transmission Date: 20140414
  Serious: Yes (Hospitalization, Other)
  Sender: FDA-Public Use
  Company Number: US-B.I. PHARMACEUTICALS,INC./RIDGEFIELD-2012-BI-01490BP

PATIENT
  Age: 55 Year
  Sex: Male
  Weight: 122.47 kg

DRUGS (10)
  1. PRADAXA [Suspect]
     Indication: ATRIAL FIBRILLATION
     Dosage: 300 MG
     Route: 048
     Dates: start: 20120416, end: 20120422
  2. AMIODARONE HCL [Concomitant]
     Indication: ATRIAL FIBRILLATION
     Dosage: 400 MG
     Route: 048
     Dates: start: 20120413
  3. LISINOPRIL [Concomitant]
     Dosage: 2.5 MG
     Route: 048
  4. COREG [Concomitant]
     Dosage: 25 MG
     Route: 048
  5. PHENERGAN W/ CODEINE [Concomitant]
  6. ATIVAN [Concomitant]
     Route: 048
  7. AMBIEN [Concomitant]
     Route: 048
  8. PROTONIX [Concomitant]
     Dosage: 80 MG
  9. LASIX [Concomitant]
     Dosage: 40 MG
  10. MULTAQ [Concomitant]

REACTIONS (3)
  - Gastrointestinal haemorrhage [Recovered/Resolved]
  - Coagulopathy [Recovered/Resolved]
  - Activities of daily living impaired [Unknown]
